FAERS Safety Report 10516526 (Version 1)
Quarter: 2014Q4

REPORT INFORMATION
  Report Type: Spontaneous
  Country: US (occurrence: None)
  Receive Date: 20141002
  Receipt Date: 20141002
  Transmission Date: 20150528
  Serious: Yes (Other)
  Sender: FDA-Public Use
  Company Number: 1424573

PATIENT
  Age: 59 Year
  Sex: Male

DRUGS (6)
  1. OMEPRAZOL(OMEPRAZOLE) [Concomitant]
  2. WELLBUTRIN(BUPROPION HYDROCHLORIDE) [Concomitant]
  3. ACETAMINOPHEN. [Concomitant]
     Active Substance: ACETAMINOPHEN
  4. HYDROCORTISONE CREAM [Concomitant]
     Active Substance: HYDROCORTISONE
  5. RIBAVIRIN(RIBAVIRIN) [Suspect]
     Active Substance: RIBAVIRIN
     Indication: HEPATITIS C
     Route: 048
     Dates: start: 20140214, end: 20140509
  6. PEG-INTERFERON ALFA 2A [Suspect]
     Active Substance: PEGINTERFERON ALFA-2A
     Indication: HEPATITIS C
     Route: 058
     Dates: start: 20140214, end: 20140509

REACTIONS (6)
  - Back pain [None]
  - Insomnia [None]
  - Neutropenia [None]
  - Hypoglycaemia [None]
  - Rash [None]
  - Fatigue [None]

NARRATIVE: CASE EVENT DATE: 20140221
